FAERS Safety Report 4545641-6 (Version None)
Quarter: 2004Q4

REPORT INFORMATION
  Report Type: 
  Country: None (occurrence: None)
  Receive Date: 20041223
  Receipt Date: 20040823
  Transmission Date: 20050328
  Serious: No
  Sender: FDA-Public Use
  Company Number: US-JNJFOC-20040808249

PATIENT
  Age: 37 Year
  Sex: Female
  Weight: 78.0187 kg

DRUGS (3)
  1. ORTHO EVRA [Suspect]
     Indication: CONTRACEPTION
     Dosage: 1 DOSE(S), 3 IN 4 DAY, TRANSDERMAL
     Route: 062
     Dates: start: 20040705, end: 20040812
  2. ADVAIR (SERETIDE MITE) [Concomitant]
  3. ALBUTEROL [Concomitant]

REACTIONS (3)
  - ANXIETY [None]
  - MENORRHAGIA [None]
  - WITHDRAWAL BLEED [None]
